FAERS Safety Report 4422897-1 (Version None)
Quarter: 2004Q3

REPORT INFORMATION
  Report Type: 
  Country: None (occurrence: None)
  Receive Date: 20040811
  Receipt Date: 20040128
  Transmission Date: 20050211
  Serious: Yes (Hospitalization)
  Sender: FDA-Public Use
  Company Number: 200410205JP

PATIENT
  Age: 72 Year
  Sex: Female
  Weight: 56 kg

DRUGS (10)
  1. ARAVA [Suspect]
     Indication: RHEUMATOID ARTHRITIS
     Route: 048
     Dates: start: 20031226, end: 20040118
  2. PREDNINE [Concomitant]
     Route: 048
  3. NIFELAT L [Concomitant]
     Route: 048
  4. MUCOSOLATE [Concomitant]
     Route: 048
  5. BIO THREE [Concomitant]
     Route: 048
  6. KIPRES [Concomitant]
     Route: 048
  7. DIOVAN [Concomitant]
     Route: 048
  8. ACTONEL [Concomitant]
     Route: 048
  9. FLUTICASONE PROPIONATE [Concomitant]
     Route: 048
  10. GASMOTIN [Concomitant]
     Route: 048

REACTIONS (11)
  - ATELECTASIS [None]
  - CARDIAC FAILURE CHRONIC [None]
  - HYPERTENSION [None]
  - IMMUNODEFICIENCY [None]
  - OEDEMA PERIPHERAL [None]
  - PERICARDIAL EFFUSION [None]
  - PLEURAL EFFUSION [None]
  - PNEUMONIA BACTERIAL [None]
  - RESPIRATORY FAILURE [None]
  - STRESS SYMPTOMS [None]
  - STRIDOR [None]
